FAERS Safety Report 5518361-9 (Version None)
Quarter: 2007Q4

REPORT INFORMATION
  Report Type: 
  Country: None (occurrence: None)
  Receive Date: 20071115
  Receipt Date: 20071112
  Transmission Date: 20080405
  Serious: Yes (Hospitalization, Other)
  Sender: FDA-Public Use
  Company Number: PHEH2005US03729

PATIENT

DRUGS (12)
  1. ZOMETA [Suspect]
     Indication: METASTASES TO BONE
     Dosage: 4 MG, QMO
     Route: 042
     Dates: start: 20030901, end: 20050405
  2. TAMOXIFEN CITRATE [Concomitant]
     Indication: BREAST CANCER
     Dosage: 10 MG, BID
     Route: 048
     Dates: start: 20020601, end: 20030901
  3. FEMARA [Concomitant]
     Dosage: 2.5 MG, BID
     Route: 048
     Dates: start: 20030901, end: 20040201
  4. FASLODEX [Concomitant]
     Dosage: 250 MG, QMO
     Route: 042
     Dates: start: 20040201, end: 20050301
  5. ATENOLOL [Concomitant]
     Dosage: 50 MG, QD
     Route: 048
  6. FOSAMAX [Concomitant]
     Dosage: 20 MG, QD
     Route: 048
  7. ARIMIDEX [Suspect]
  8. ALENDRONATE SODIUM [Suspect]
     Indication: HYPERCALCAEMIA
     Route: 042
  9. LIPITOR [Concomitant]
     Dosage: UNK, UNK
  10. ZOLOFT [Concomitant]
     Dosage: UNK, UNK
  11. AMBIEN [Concomitant]
     Dosage: UNK, UNK
  12. HYDROCODONE BITARTRATE [Concomitant]
     Dosage: UNK, UNK

REACTIONS (18)
  - BONE DISORDER [None]
  - BONE OPERATION [None]
  - BREAST RECONSTRUCTION [None]
  - CHEST WALL OPERATION [None]
  - DENTAL TREATMENT [None]
  - EATING DISORDER [None]
  - GINGIVAL PAIN [None]
  - IMPAIRED HEALING [None]
  - NEURALGIA [None]
  - NIGHT SWEATS [None]
  - ORAL CAVITY FISTULA [None]
  - ORAL MUCOSAL EXFOLIATION [None]
  - OSTEONECROSIS [None]
  - PAIN [None]
  - PLASTIC SURGERY [None]
  - PYREXIA [None]
  - TOOTH LOSS [None]
  - WHITE BLOOD CELL COUNT INCREASED [None]
